FAERS Safety Report 4343096-8 (Version None)
Quarter: 2004Q2

REPORT INFORMATION
  Report Type: 
  Country: None (occurrence: None)
  Receive Date: 20040420
  Receipt Date: 20040406
  Transmission Date: 20050107
  Serious: Yes (Other)
  Sender: FDA-Public Use
  Company Number: 04-04-0509

PATIENT
  Age: 64 Year
  Sex: Female

DRUGS (7)
  1. CLOZAPINE [Suspect]
     Indication: SCHIZOPHRENIA
     Dosage: 100MG HS ORAL
     Route: 048
     Dates: start: 20001001, end: 20040301
  2. DITROPAN XL [Concomitant]
  3. LITHIUM [Concomitant]
  4. NEURONTIN [Concomitant]
  5. PREVACID [Concomitant]
  6. DOCUSATE SODIUM [Concomitant]
  7. LEVOTHYROXINE [Concomitant]

REACTIONS (2)
  - ELECTROCARDIOGRAM QT CORRECTED INTERVAL PROLONGED [None]
  - ELECTROCARDIOGRAM QT PROLONGED [None]
